FAERS Safety Report 4365991-6 (Version None)
Quarter: 2004Q2

REPORT INFORMATION
  Report Type: 
  Country: None (occurrence: None)
  Receive Date: 20040524
  Receipt Date: 20040513
  Transmission Date: 20050107
  Serious: Yes (Other)
  Sender: FDA-Public Use
  Company Number: 8007

PATIENT
  Sex: Female

DRUGS (3)
  1. METHOTREXATE [Suspect]
     Indication: BREAST CANCER STAGE IV
  2. FLUOROURACIL [Suspect]
     Indication: BREAST CANCER STAGE IV
  3. CYCLOPHOSPHAMIDE [Suspect]
     Indication: BREAST CANCER STAGE IV

REACTIONS (2)
  - DRUG EXPOSURE DURING PREGNANCY [None]
  - INTRA-UTERINE DEATH [None]
